FAERS Safety Report 5344487-9 (Version None)
Quarter: 2007Q2

REPORT INFORMATION
  Report Type: 
  Country: None (occurrence: None)
  Receive Date: 20070604
  Receipt Date: 20070523
  Transmission Date: 20071010
  Serious: Yes (Hospitalization)
  Sender: FDA-Public Use
  Company Number: US-PFIZER INC-2007036293

PATIENT
  Age: 52 Year
  Sex: Female
  Weight: 88 kg

DRUGS (8)
  1. AROMASIN [Suspect]
     Indication: BREAST CANCER
     Route: 048
     Dates: start: 20070125, end: 20070502
  2. AROMASIN [Suspect]
     Route: 048
  3. ADVAIR DISKUS 100/50 [Concomitant]
     Indication: ASTHMA
     Dosage: FREQ:TWICE DAILY
     Route: 055
  4. FEXOFENADINE HYDROCHLORIDE [Concomitant]
     Indication: HYPERSENSITIVITY
     Route: 048
  5. MONTELUKAST SODIUM [Concomitant]
     Indication: ASTHMA
     Dosage: FREQ:DAILY
  6. CALCIUM CHLORIDE [Concomitant]
     Dosage: DAILY DOSE:1250MG-FREQ:DAILY
     Route: 048
  7. VITAMIN D [Concomitant]
     Dosage: DAILY DOSE:400I.U.-FREQ:DAILY
     Route: 048
  8. FLUTICASONE PROPIONATE [Concomitant]
     Indication: ASTHMA
     Dosage: FREQ:DAILY
     Route: 055

REACTIONS (1)
  - MIGRAINE [None]
